FAERS Safety Report 9086673 (Version 4)
Quarter: 2013Q3

REPORT INFORMATION
  Report Type: Spontaneous
  Country: US (occurrence: US)
  Receive Date: 20130131
  Receipt Date: 20130916
  Transmission Date: 20140515
  Serious: Yes (Other)
  Sender: FDA-Public Use
  Company Number: US-PFIZER INC-2012040885

PATIENT
  Sex: Female

DRUGS (1)
  1. LYRICA [Suspect]
     Dosage: UNK
     Route: 048

REACTIONS (5)
  - Neck injury [Unknown]
  - Spinal disorder [Unknown]
  - Pain [Unknown]
  - Myalgia [Unknown]
  - Neuralgia [Unknown]
